FAERS Safety Report 7582249-2 (Version None)
Quarter: 2011Q2

REPORT INFORMATION
  Report Type: 
  Country: None (occurrence: None)
  Receive Date: 20110622
  Receipt Date: 20110606
  Transmission Date: 20111010
  Serious: Yes (Hospitalization)
  Sender: FDA-Public Use
  Company Number: B0726123A

PATIENT
  Age: 50 Year
  Sex: Female

DRUGS (2)
  1. REPAGLINIDE [Concomitant]
  2. LAMOTRIGINE [Suspect]
     Indication: BIPOLAR DISORDER

REACTIONS (8)
  - TACHYCARDIA [None]
  - INTENTIONAL OVERDOSE [None]
  - UNRESPONSIVE TO STIMULI [None]
  - BODY TEMPERATURE DECREASED [None]
  - SUICIDE ATTEMPT [None]
  - BLOOD PRESSURE DIASTOLIC DECREASED [None]
  - CARDIOTOXICITY [None]
  - BUNDLE BRANCH BLOCK LEFT [None]
